FAERS Safety Report 23628881 (Version 1)
Quarter: 2024Q1

REPORT INFORMATION
  Report Type: Spontaneous
  Country: CA (occurrence: CA)
  Receive Date: 20240313
  Receipt Date: 20240313
  Transmission Date: 20240410
  Serious: Yes (Other)
  Sender: FDA-Public Use
  Company Number: CA-PFIZER INC-202400062393

PATIENT
  Age: 30 Year
  Sex: Female

DRUGS (1)
  1. ABRILADA [Suspect]
     Active Substance: ADALIMUMAB-AFZB
     Indication: Hidradenitis
     Dosage: 1 DF, (WEEK 0 160 MG, WEEK 2 80 MG AND THEN 40 MG EVERY OTHER WEEK)
     Route: 058
     Dates: start: 20240102

REACTIONS (1)
  - Wisdom teeth removal [Unknown]
